FAERS Safety Report 6285695-2 (Version None)
Quarter: 2009Q3

REPORT INFORMATION
  Report Type: 
  Country: None (occurrence: None)
  Receive Date: 20090724
  Receipt Date: 20090717
  Transmission Date: 20100115
  Serious: Yes (Other)
  Sender: FDA-Public Use
  Company Number: 2009US002524

PATIENT
  Age: 50 Year
  Sex: Male

DRUGS (12)
  1. PROGRAF [Suspect]
     Indication: RENAL TRANSPLANT
     Dosage: 1 MG, BID,
     Dates: start: 19961021, end: 20081209
  2. CELLCEPT [Concomitant]
  3. ALLOPURINOL [Concomitant]
  4. AMLODIPINE [Concomitant]
  5. VITAMIN B COMPLEX CAP [Concomitant]
  6. FOLIC ACID [Concomitant]
  7. BISACODYL (BISACODYL) [Concomitant]
  8. VITAMIN D2 [Concomitant]
  9. SEVELAMER HYDROCHLORIDE (SEVELAMER HYDROCHLORIDE) [Concomitant]
  10. SODIUM BICARBONATE IN PLASTIC CONTAINER [Concomitant]
  11. OMEPRAZOLE [Concomitant]
  12. LABETALOL HCL [Concomitant]

REACTIONS (3)
  - DIALYSIS [None]
  - RENAL FAILURE CHRONIC [None]
  - RENAL GRAFT LOSS [None]
